FAERS Safety Report 24450564 (Version 1)
Quarter: 2024Q4

REPORT INFORMATION
  Report Type: Spontaneous
  Country: US (occurrence: None)
  Receive Date: 20241017
  Receipt Date: 20241017
  Transmission Date: 20250115
  Serious: Yes (Hospitalization)
  Sender: Public
  Company Number: None

PATIENT
  Age: 75 Year
  Sex: Female
  Weight: 89.3 kg

DRUGS (2)
  1. CYTARABINE [Suspect]
     Active Substance: CYTARABINE
     Dates: end: 20190831
  2. DAUNORUBICIN [Suspect]
     Active Substance: DAUNORUBICIN
     Dates: end: 20190718

REACTIONS (7)
  - Febrile neutropenia [None]
  - Atrial flutter [None]
  - Platelet count decreased [None]
  - Rash [None]
  - Acute kidney injury [None]
  - Haemodialysis [None]
  - Anaemia [None]

NARRATIVE: CASE EVENT DATE: 20190911
